FAERS Safety Report 6719938-5 (Version None)
Quarter: 2010Q2

REPORT INFORMATION
  Report Type: 
  Country: None (occurrence: None)
  Receive Date: 20100511
  Receipt Date: 20100506
  Transmission Date: 20101027
  Serious: Yes (Hospitalization)
  Sender: FDA-Public Use
  Company Number: DE-BAYER-200914768GPV

PATIENT
  Age: 68 Year
  Sex: Male

DRUGS (19)
  1. NEXAVAR [Suspect]
     Indication: METASTATIC RENAL CELL CARCINOMA
     Route: 048
     Dates: start: 20080608, end: 20080709
  2. NEXAVAR [Suspect]
     Route: 048
     Dates: start: 20080709, end: 20080809
  3. NEXAVAR [Suspect]
     Route: 048
     Dates: start: 20080910
  4. TAMSULOSIN HCL [Suspect]
     Indication: BENIGN PROSTATIC HYPERPLASIA
     Dosage: TOTAL DAILY DOSE: 0.4 MG
     Route: 048
  5. ZOMETA [Suspect]
     Indication: METASTASES TO BONE
     Route: 042
     Dates: start: 20080618, end: 20080716
  6. LISINOPRIL [Suspect]
     Indication: HYPERTENSION
     Route: 048
     Dates: start: 19960101, end: 20071027
  7. AMLODIPINE [Suspect]
     Indication: HYPERTENSION
     Dosage: TOTAL DAILY DOSE: 10 MG
     Route: 048
     Dates: start: 20080601
  8. ALDACTONE [Concomitant]
     Indication: CARDIAC FAILURE
     Dosage: TOTAL DAILY DOSE: 25 MG
     Route: 048
     Dates: start: 20080601
  9. AMARYL [Concomitant]
     Indication: TYPE 2 DIABETES MELLITUS
     Dosage: TOTAL DAILY DOSE: 1 MG
     Route: 048
     Dates: start: 20080201
  10. ASPIRIN [Concomitant]
     Indication: CORONARY ARTERY DISEASE
     Dosage: TOTAL DAILY DOSE: 100 MG
     Route: 048
     Dates: start: 20001101
  11. METOPROLOL SUCCINATE [Concomitant]
     Indication: ARRHYTHMIA
     Dosage: TOTAL DAILY DOSE: 190 MG
     Route: 048
     Dates: start: 20001001
  12. DIGITOXIN [Concomitant]
     Indication: CARDIAC FAILURE
     Dosage: TOTAL DAILY DOSE: 0.07 MG
     Route: 048
     Dates: start: 20080601
  13. GLUCOBAY [Concomitant]
     Indication: TYPE 2 DIABETES MELLITUS
     Dosage: TOTAL DAILY DOSE: 150 MG
     Route: 048
     Dates: start: 19960101
  14. ISCOVER [Concomitant]
     Indication: STENT PLACEMENT
     Dosage: TOTAL DAILY DOSE: 75 MG
     Route: 048
     Dates: start: 20080301
  15. LOCOL [Concomitant]
     Indication: HYPERLIPIDAEMIA
     Dosage: TOTAL DAILY DOSE: 80 MG
     Route: 048
     Dates: start: 20080601
  16. METHIZOL [Concomitant]
     Indication: HYPERTHYROIDISM
     Dosage: TOTAL DAILY DOSE: 5 MG
     Route: 048
     Dates: start: 20080201
  17. PARACETAMOL [Concomitant]
     Indication: PAIN
     Dosage: TOTAL DAILY DOSE: 1000 MG
     Route: 048
     Dates: start: 20080807, end: 20080809
  18. PENTAERYTHRITOL TETRANITRATE [Concomitant]
     Indication: CORONARY ARTERY DISEASE
     Dosage: TOTAL DAILY DOSE: 240 MG
     Route: 048
     Dates: start: 20060601
  19. TORSEMIDE [Concomitant]
     Indication: CARDIAC FAILURE
     Dosage: TOTAL DAILY DOSE: 5 MG
     Route: 048
     Dates: start: 20080601

REACTIONS (1)
  - ANGIOEDEMA [None]
